FAERS Safety Report 4519814-2 (Version None)
Quarter: 2004Q4

REPORT INFORMATION
  Report Type: 
  Country: None (occurrence: None)
  Receive Date: 20041202
  Receipt Date: 20041202
  Transmission Date: 20050328
  Serious: Yes (Hospitalization)
  Sender: FDA-Public Use
  Company Number: None

PATIENT
  Age: 67 Year
  Sex: Female
  Weight: 75.7507 kg

DRUGS (8)
  1. IRESSA [Suspect]
     Indication: OESOPHAGEAL CARCINOMA
     Dosage: 250MG ONCE/DAY ORALLY
     Route: 048
     Dates: start: 20041006
  2. CISPLATIN [Suspect]
     Indication: OESOPHAGEAL CARCINOMA
     Dosage: 75 MG/M2
     Dates: start: 20041025
  3. FLUOROURACIL [Suspect]
     Indication: OESOPHAGEAL CARCINOMA
     Dosage: 1000 MG/M2 IV
     Route: 042
     Dates: start: 20041025
  4. CELEBREX [Concomitant]
  5. OS-CAL [Concomitant]
  6. IMODIUM [Concomitant]
  7. PROTONIX [Concomitant]
  8. MULTI-VITAMINS [Concomitant]

REACTIONS (2)
  - DEHYDRATION [None]
  - DIARRHOEA [None]
